FAERS Safety Report 9660934 (Version 2)
Quarter: 2013Q4

REPORT INFORMATION
  Report Type: Report from Study
  Country: US (occurrence: US)
  Receive Date: 20131031
  Receipt Date: 20131114
  Transmission Date: 20140711
  Serious: Yes (Other)
  Sender: FDA-Public Use
  Company Number: US-JNJFOC-20131016397

PATIENT
  Sex: Male
  Weight: 108.86 kg

DRUGS (6)
  1. REMICADE [Suspect]
     Indication: ANKYLOSING SPONDYLITIS
     Dosage: DRUG WAS STARTED 4 TO 5 YEARS PRIOR TO THE DATE OF THIS REPORT.
     Route: 042
  2. REMICADE [Suspect]
     Indication: ANKYLOSING SPONDYLITIS
     Route: 042
     Dates: start: 2013, end: 2013
  3. AMOXICILLIN [Suspect]
     Indication: PRODUCT USED FOR UNKNOWN INDICATION
     Route: 065
  4. BENADRYL [Concomitant]
     Indication: PREMEDICATION
     Route: 042
     Dates: start: 2013
  5. STEROIDS NOS [Concomitant]
     Indication: PREMEDICATION
     Route: 065
     Dates: start: 2013
  6. NORMAL SALINE [Concomitant]
     Indication: PREMEDICATION
     Route: 065
     Dates: start: 2013

REACTIONS (7)
  - Ankle fracture [Recovered/Resolved]
  - Infusion related reaction [Unknown]
  - Fall [Recovered/Resolved]
  - Hypersensitivity [Unknown]
  - Glucose tolerance impaired [Unknown]
  - Excoriation [Unknown]
  - Weight decreased [Not Recovered/Not Resolved]
